FAERS Safety Report 6250407-5 (Version None)
Quarter: 2009Q2

REPORT INFORMATION
  Report Type: 
  Country: None (occurrence: None)
  Receive Date: 20090630
  Receipt Date: 20090611
  Transmission Date: 20091009
  Serious: Yes (Disabling)
  Sender: FDA-Public Use
  Company Number: NO-ASTRAZENECA-2009SE03271

PATIENT
  Sex: Female

DRUGS (1)
  1. ATACAND [Suspect]
     Indication: MIGRAINE
     Route: 048
     Dates: start: 20080101, end: 20090501

REACTIONS (1)
  - ANOSMIA [None]
